FAERS Safety Report 8325394-6 (Version None)
Quarter: 2012Q2

REPORT INFORMATION
  Report Type: 
  Country: None (occurrence: None)
  Receive Date: 20120501
  Receipt Date: 20100417
  Transmission Date: 20120825
  Serious: No
  Sender: FDA-Public Use
  Company Number: US-TEVA-2010002307

PATIENT
  Sex: Female
  Weight: 59.02 kg

DRUGS (14)
  1. NUVIGIL [Suspect]
     Indication: FATIGUE
     Dosage: 75 MILLIGRAM;
     Route: 048
     Dates: start: 20100401
  2. PROTONIX [Concomitant]
     Dates: start: 19950101
  3. DOCUSATE NA [Concomitant]
     Dates: start: 20000101
  4. AMANTADINE HCL [Concomitant]
     Dates: start: 19900101
  5. SYNTHROID [Concomitant]
     Dates: start: 19950101
  6. PROZAC [Concomitant]
     Dates: start: 20010101
  7. DIOVAN [Concomitant]
     Dates: start: 19950101
  8. FLAXSEED OIL [Concomitant]
     Dates: start: 20000101
  9. MULTI-VITAMIN [Suspect]
     Dates: start: 19950101
  10. DITROPAN XL [Concomitant]
     Dates: start: 19900101
  11. LECITHIN [Concomitant]
     Dates: start: 19850101
  12. BACLOFEN [Concomitant]
     Dates: start: 19900101
  13. KEPPRA [Concomitant]
     Dates: start: 20040101
  14. BONIVA [Concomitant]
     Dates: start: 20030101

REACTIONS (1)
  - CHROMATURIA [None]
